FAERS Safety Report 18118727 (Version 2)
Quarter: 2020Q3

REPORT INFORMATION
  Report Type: Spontaneous
  Country: US (occurrence: US)
  Receive Date: 20200806
  Receipt Date: 20200807
  Transmission Date: 20201103
  Serious: No
  Sender: FDA-Public Use
  Company Number: US-PFIZER INC-2020298494

PATIENT
  Age: 83 Year
  Sex: Male

DRUGS (5)
  1. NEURONTIN [Suspect]
     Active Substance: GABAPENTIN
     Dosage: 2400 MG, 1X/DAY (2400MG A DAY/2400 MG DAILY)
  2. NEURONTIN [Suspect]
     Active Substance: GABAPENTIN
     Dosage: 600 MG, 3X/DAY
  3. NEURONTIN [Suspect]
     Active Substance: GABAPENTIN
     Dosage: 300 MG, 3X/DAY (300MG THREE TIMES A DAY)
  4. NEURONTIN [Suspect]
     Active Substance: GABAPENTIN
     Indication: MUSCLE TWITCHING
     Dosage: 250 MG
  5. NEURONTIN [Suspect]
     Active Substance: GABAPENTIN
     Dosage: 300 MG

REACTIONS (6)
  - Off label use [Unknown]
  - Intentional product use issue [Unknown]
  - Fatigue [Unknown]
  - Somnolence [Unknown]
  - Drug ineffective for unapproved indication [Unknown]
  - Peripheral swelling [Unknown]
